FAERS Safety Report 6813670-5 (Version None)
Quarter: 2010Q3

REPORT INFORMATION
  Report Type: 
  Country: None (occurrence: None)
  Receive Date: 20100701
  Receipt Date: 20100623
  Transmission Date: 20110219
  Serious: Yes (Hospitalization)
  Sender: FDA-Public Use
  Company Number: JP-ELI_LILLY_AND_COMPANY-JP201002002126

PATIENT
  Age: 76 Year
  Sex: Male

DRUGS (6)
  1. ALIMTA [Suspect]
     Indication: NON-SMALL CELL LUNG CANCER
     Dosage: 794 MG, OTHER
     Route: 042
     Dates: start: 20100128
  2. FOLIC ACID [Concomitant]
     Route: 048
  3. VITAMIN B-12 [Concomitant]
  4. CARBOPLATIN [Concomitant]
     Indication: NON-SMALL CELL LUNG CANCER
     Dosage: 610.8 MG, UNK
     Route: 042
     Dates: start: 20100128
  5. DUROTEP [Concomitant]
     Dosage: 4.2 MG, UNK
     Route: 062
     Dates: start: 20100204
  6. OXINORM [Concomitant]
     Dosage: 5 MG, UNK
     Route: 048
     Dates: start: 20100204

REACTIONS (1)
  - ILEUS [None]
